FAERS Safety Report 5590316-8 (Version None)
Quarter: 2008Q1

REPORT INFORMATION
  Report Type: 
  Country: None (occurrence: None)
  Receive Date: 20080114
  Receipt Date: 20080104
  Transmission Date: 20080703
  Serious: Yes (Hospitalization)
  Sender: FDA-Public Use
  Company Number: US-ABBOTT-08P-163-0432425-00

PATIENT
  Sex: Female
  Weight: 61.744 kg

DRUGS (5)
  1. HUMIRA [Suspect]
     Indication: CROHN'S DISEASE
     Route: 058
     Dates: start: 20070401
  2. HUMIRA [Suspect]
     Indication: PSORIATIC ARTHROPATHY
     Dates: end: 20071216
  3. HUMIRA [Suspect]
     Dates: start: 20071230
  4. PREDNISONE TAB [Concomitant]
     Indication: CROHN'S DISEASE
     Route: 048
     Dates: end: 20070401
  5. METHOTREXATE [Concomitant]
     Indication: PSORIASIS
     Route: 048

REACTIONS (3)
  - HYPOTENSION [None]
  - INTESTINAL OBSTRUCTION [None]
  - UNRESPONSIVE TO STIMULI [None]
